FAERS Safety Report 5128173-6 (Version None)
Quarter: 2006Q4

REPORT INFORMATION
  Report Type: 
  Country: None (occurrence: None)
  Receive Date: 20061011
  Receipt Date: 20060928
  Transmission Date: 20070319
  Serious: Yes (Disabling, Other)
  Sender: FDA-Public Use
  Company Number: 148118ISR

PATIENT
  Age: 22 Year
  Sex: Female

DRUGS (1)
  1. DOXYCYCLINE [Suspect]
     Indication: CHLAMYDIAL INFECTION
     Dosage: 200 MG 100 MG, 2 IN 1 D), ORAL
     Route: 048
     Dates: start: 20060726, end: 20060730

REACTIONS (1)
  - CHEST PAIN [None]
